FAERS Safety Report 7568747-6 (Version None)
Quarter: 2011Q2

REPORT INFORMATION
  Report Type: 
  Country: None (occurrence: None)
  Receive Date: 20110623
  Receipt Date: 20110614
  Transmission Date: 20111010
  Serious: Yes (Hospitalization, Other)
  Sender: FDA-Public Use
  Company Number: US-ASTRAZENECA-2010SE60343

PATIENT
  Age: 77 Year
  Sex: Female

DRUGS (1)
  1. ARIMIDEX [Suspect]
     Route: 048

REACTIONS (10)
  - MASTECTOMY [None]
  - MALAISE [None]
  - ANKLE FRACTURE [None]
  - ARTHRITIS [None]
  - ABDOMINAL DISCOMFORT [None]
  - DRUG INTOLERANCE [None]
  - DYSSTASIA [None]
  - ARTHRODESIS [None]
  - HEARING IMPAIRED [None]
  - DEAFNESS [None]
